FAERS Safety Report 14959746 (Version 1)
Quarter: 2018Q2

REPORT INFORMATION
  Report Type: Spontaneous
  Country: CZ (occurrence: CZ)
  Receive Date: 20180531
  Receipt Date: 20180531
  Transmission Date: 20180711
  Serious: Yes (Other)
  Sender: FDA-Public Use
  Company Number: CZ-TEVA-2018-CZ-895469

PATIENT
  Age: 49 Year
  Sex: Female

DRUGS (2)
  1. OXALIPLATIN. [Suspect]
     Active Substance: OXALIPLATIN
     Indication: RECTAL ADENOCARCINOMA
     Dosage: A PART OF FOLFOX REGIMEN
     Route: 042
     Dates: start: 201605, end: 201712
  2. FOLINIC ACID [Suspect]
     Active Substance: LEUCOVORIN
     Indication: RECTAL ADENOCARCINOMA
     Dosage: A PART OF FOLFOX REGIMEN
     Route: 042
     Dates: start: 201605, end: 201712

REACTIONS (2)
  - Leukopenia [Unknown]
  - Peripheral sensory neuropathy [Not Recovered/Not Resolved]
